FAERS Safety Report 7588075-2 (Version None)
Quarter: 2011Q3

REPORT INFORMATION
  Report Type: 
  Country: None (occurrence: None)
  Receive Date: 20110705
  Receipt Date: 20110629
  Transmission Date: 20111222
  Serious: No
  Sender: FDA-Public Use
  Company Number: US-PFIZER INC-2011145751

PATIENT
  Sex: Female
  Weight: 63.9 kg

DRUGS (5)
  1. PROTONIX [Concomitant]
     Indication: GASTROOESOPHAGEAL REFLUX DISEASE
     Dosage: 40 MG, DAILY
     Route: 048
  2. SIMVASTATIN [Concomitant]
     Indication: BLOOD CHOLESTEROL INCREASED
     Dosage: 20 MG, DAILY
     Route: 048
  3. ATACAND [Concomitant]
     Indication: HYPERTENSION
     Dosage: 60.5 MG, DAILY
     Route: 048
  4. LOPID [Concomitant]
     Indication: BLOOD TRIGLYCERIDES INCREASED
     Dosage: UNK, 2X/DAY
     Route: 048
  5. PREMPRO [Suspect]
     Indication: HOT FLUSH
     Dosage: 0.3/1.5 MG, EVERY OTHER DAY
     Route: 048

REACTIONS (3)
  - INSOMNIA [None]
  - HOT FLUSH [None]
  - HYPERHIDROSIS [None]
